FAERS Safety Report 8239104-4 (Version None)
Quarter: 2012Q1

REPORT INFORMATION
  Report Type: 
  Country: None (occurrence: None)
  Receive Date: 20120327
  Receipt Date: 20120320
  Transmission Date: 20120608
  Serious: Yes (Life-Threatening, Hospitalization)
  Sender: FDA-Public Use
  Company Number: US-AMGEN-USASP2012019211

PATIENT
  Age: 44 Year
  Sex: Female
  Weight: 119.5 kg

DRUGS (15)
  1. DOXORUBICIN HCL [Suspect]
     Indication: BREAST CANCER
     Dosage: 60 UNK, UNK
     Route: 042
     Dates: start: 20110324
  2. DIFLUCAN [Concomitant]
  3. PROCHLORPERAZINE [Concomitant]
  4. TESSALON [Concomitant]
  5. PEGFILGRASTIM [Suspect]
     Indication: PRODUCT USED FOR UNKNOWN INDICATION
     Dosage: 6 MG, UNK
  6. PACLITAXEL [Suspect]
     Indication: BREAST CANCER
     Dosage: 80 UNK, UNK
     Route: 042
     Dates: start: 20110324
  7. CEFEPIME [Concomitant]
  8. MUCINEX [Concomitant]
  9. BEVACIZUMAB [Suspect]
     Indication: BREAST CANCER
     Dosage: 10 MG/KG, UNK
     Route: 042
     Dates: start: 20110324
  10. PEPCID [Concomitant]
  11. TOPROL-XL [Concomitant]
  12. TYLENOL (CAPLET) [Concomitant]
  13. BACITRACIN [Concomitant]
  14. CYCLOPHOSPHAMIDE [Suspect]
     Indication: BREAST CANCER
     Dosage: 1300 MG, UNK
     Route: 042
     Dates: start: 20110324
  15. AMBIEN [Concomitant]

REACTIONS (7)
  - DIARRHOEA [None]
  - FEBRILE NEUTROPENIA [None]
  - LYMPHATIC DISORDER [None]
  - PLATELET COUNT DECREASED [None]
  - ANAEMIA [None]
  - WHITE BLOOD CELL COUNT DECREASED [None]
  - CARDIAC DISORDER [None]
